FAERS Safety Report 16772107 (Version 1)
Quarter: 2019Q3

REPORT INFORMATION
  Report Type: Spontaneous
  Country: US (occurrence: US)
  Receive Date: 20190904
  Receipt Date: 20190904
  Transmission Date: 20191005
  Serious: Yes (Hospitalization, Other)
  Sender: FDA-Public Use
  Company Number: US-SUNOVION-2019SUN003663

PATIENT
  Age: 21 Year
  Sex: Female

DRUGS (3)
  1. RISPERIDONE. [Concomitant]
     Active Substance: RISPERIDONE
  2. LATUDA [Suspect]
     Active Substance: LURASIDONE HYDROCHLORIDE
     Indication: SCHIZOPHRENIFORM DISORDER
     Dosage: 120 MG, QD
     Route: 048
  3. LATUDA [Suspect]
     Active Substance: LURASIDONE HYDROCHLORIDE
     Indication: PSYCHOTIC DISORDER
     Dosage: 120 MG, TID
     Route: 048

REACTIONS (4)
  - Overdose [Unknown]
  - Serotonin syndrome [Unknown]
  - Maternal exposure during pregnancy [Unknown]
  - Off label use [Unknown]
